FAERS Safety Report 6323573-0 (Version None)
Quarter: 2009Q3

REPORT INFORMATION
  Report Type: 
  Country: None (occurrence: None)
  Receive Date: 20090824
  Receipt Date: 20090610
  Transmission Date: 20100115
  Serious: No
  Sender: FDA-Public Use
  Company Number: US-ABBOTT-09P-163-0579172-00

PATIENT
  Sex: Male
  Weight: 86.26 kg

DRUGS (6)
  1. NIASPAN [Suspect]
     Indication: HIGH DENSITY LIPOPROTEIN DECREASED
     Route: 048
     Dates: start: 20090301, end: 20090301
  2. NIASPAN [Suspect]
     Dosage: 1000 MILLIGRAM
     Route: 048
     Dates: start: 20090301, end: 20090401
  3. NIASPAN [Suspect]
     Dates: start: 20090401, end: 20090401
  4. NIASPAN [Suspect]
     Dates: start: 20090501
  5. LIPITOR [Concomitant]
     Indication: DRUG USE FOR UNKNOWN INDICATION
  6. DIOVAN [Concomitant]
     Indication: HYPERTENSION

REACTIONS (1)
  - BLOOD GLUCOSE INCREASED [None]
